FAERS Safety Report 4885067-9 (Version None)
Quarter: 2006Q1

REPORT INFORMATION
  Report Type: 
  Country: None (occurrence: None)
  Receive Date: 20060119
  Receipt Date: 20051103
  Transmission Date: 20060701
  Serious: Yes (Other)
  Sender: FDA-Public Use
  Company Number: US-MERCK-0511USA00567

PATIENT
  Age: 64 Year
  Sex: Female
  Weight: 83 kg

DRUGS (12)
  1. COREG [Concomitant]
     Route: 065
  2. LOPID [Suspect]
     Route: 065
     Dates: end: 20050916
  3. TYLENOL (CAPLET) [Suspect]
     Route: 065
  4. VYTORIN [Suspect]
     Indication: HYPERLIPIDAEMIA
     Route: 047
     Dates: start: 20050808, end: 20050916
  5. VYTORIN [Suspect]
     Indication: BLOOD CHOLESTEROL INCREASED
     Route: 047
     Dates: start: 20050808, end: 20050916
  6. SEROQUEL [Suspect]
     Route: 065
     Dates: end: 20050916
  7. LEXAPRO [Suspect]
     Route: 065
     Dates: end: 20050916
  8. ECOTRIN [Concomitant]
     Route: 065
  9. TOPROL-XL [Concomitant]
     Route: 065
  10. FUROSEMIDE [Concomitant]
     Route: 065
  11. K-DUR 10 [Concomitant]
     Route: 065
  12. CLONIDINE [Concomitant]
     Route: 065

REACTIONS (9)
  - ALANINE AMINOTRANSFERASE INCREASED [None]
  - ASPARTATE AMINOTRANSFERASE INCREASED [None]
  - BLOOD ALKALINE PHOSPHATASE INCREASED [None]
  - HEADACHE [None]
  - HEPATIC STEATOSIS [None]
  - HEPATOTOXICITY [None]
  - HYPERTENSIVE CRISIS [None]
  - HYPOAESTHESIA [None]
  - OEDEMA PERIPHERAL [None]
